FAERS Safety Report 16947393 (Version 5)
Quarter: 2019Q4

REPORT INFORMATION
  Report Type: Spontaneous
  Country: US (occurrence: US)
  Receive Date: 20191022
  Receipt Date: 20191219
  Transmission Date: 20200122
  Serious: Yes (Life-Threatening, Hospitalization, Other)
  Sender: FDA-Public Use
  Company Number: US-PFIZER INC-2019455299

PATIENT
  Age: 77 Year
  Sex: Female
  Weight: 83.9 kg

DRUGS (8)
  1. LISINOPRIL. [Concomitant]
     Active Substance: LISINOPRIL
     Dosage: UNK
  2. ATORVASTATIN CALCIUM. [Suspect]
     Active Substance: ATORVASTATIN CALCIUM
     Indication: BLOOD TRIGLYCERIDES INCREASED
     Dosage: 20 MG, 1X/DAY
  3. HUMULIN NOS [Concomitant]
     Active Substance: INSULIN HUMAN
     Dosage: UNK
  4. LEVOTHYROXINE. [Concomitant]
     Active Substance: LEVOTHYROXINE
     Dosage: UNK
  5. ALPRAZOLAM. [Concomitant]
     Active Substance: ALPRAZOLAM
     Dosage: UNK
  6. NIFEDIPINE. [Concomitant]
     Active Substance: NIFEDIPINE
     Dosage: UNK
  7. HYDROCODONE [Concomitant]
     Active Substance: HYDROCODONE
     Dosage: UNK
  8. ATORVASTATIN CALCIUM. [Suspect]
     Active Substance: ATORVASTATIN CALCIUM
     Indication: BLOOD CHOLESTEROL INCREASED

REACTIONS (17)
  - Allergic reaction to excipient [Unknown]
  - Anaemia [Unknown]
  - Malaise [Unknown]
  - Myalgia [Unknown]
  - Blindness unilateral [Unknown]
  - Nausea [Unknown]
  - Diabetic neuropathy [Unknown]
  - Intervertebral disc protrusion [Unknown]
  - Thyroid disorder [Unknown]
  - Confusional state [Unknown]
  - Depression [Unknown]
  - Renal disorder [Unknown]
  - Pain [Unknown]
  - Vomiting [Unknown]
  - Essential hypertension [Unknown]
  - Hyperthyroidism [Unknown]
  - Diabetes mellitus [Unknown]
